FAERS Safety Report 14305011 (Version 1)
Quarter: 2017Q4

REPORT INFORMATION
  Report Type: Spontaneous
  Country: JP (occurrence: JP)
  Receive Date: 20171219
  Receipt Date: 20171219
  Transmission Date: 20180321
  Serious: Yes (Death)
  Sender: FDA-Public Use
  Company Number: JP-OTSUKA-03100-JPN-07-0243

PATIENT
  Age: 59 Year
  Sex: Male
  Weight: 43.5 kg

DRUGS (26)
  1. LEVOMEPROMAZINE [Suspect]
     Active Substance: LEVOMEPROMAZINE
     Indication: PRODUCT USED FOR UNKNOWN INDICATION
     Dosage: 25 MG, UNK
     Route: 048
     Dates: start: 20070404, end: 20070430
  2. RITASEND [Concomitant]
     Indication: CONSTIPATION
     Dosage: 24 MG, QD
     Route: 048
     Dates: end: 20070525
  3. DORAL [Concomitant]
     Active Substance: QUAZEPAM
     Indication: INSOMNIA
     Dosage: 30 MG, QD
     Route: 048
     Dates: start: 20070330, end: 20070508
  4. ABILIFY [Suspect]
     Active Substance: ARIPIPRAZOLE
     Dosage: 30 MG, TID
     Route: 048
     Dates: start: 20070323, end: 20070405
  5. ABILIFY [Suspect]
     Active Substance: ARIPIPRAZOLE
     Dosage: 6 MG, TID
     Route: 048
     Dates: start: 20070406, end: 20070412
  6. HALOMIDOL [Concomitant]
     Dosage: 3 MG, QD
     Route: 048
     Dates: start: 20070316, end: 20070501
  7. PUZERANE [Concomitant]
     Indication: ANGINA PECTORIS
     Dosage: 50 MG, TID
     Route: 048
     Dates: end: 20070315
  8. ABILIFY [Suspect]
     Active Substance: ARIPIPRAZOLE
     Indication: SCHIZOPHRENIA
     Dosage: 6 MG, BID
     Route: 048
     Dates: start: 20070316, end: 20070322
  9. RISPERDAL [Suspect]
     Active Substance: RISPERIDONE
     Dosage: 2 MG, TID
     Route: 048
     Dates: start: 20070413, end: 20070419
  10. CHLORPROMAZINE HYDROCHLORIDE. [Concomitant]
     Active Substance: CHLORPROMAZINE HYDROCHLORIDE
     Dosage: 50 MG, TID
     Route: 048
     Dates: start: 20070406, end: 20070412
  11. RISPERDAL [Suspect]
     Active Substance: RISPERIDONE
     Indication: SCHIZOPHRENIA
     Dosage: 1 MG, TID
     Route: 048
     Dates: start: 20070404, end: 20070412
  12. TASMOLIN [Concomitant]
     Active Substance: BIPERIDEN
     Dosage: 1 MG, QD
     Route: 048
     Dates: start: 20070406, end: 20070412
  13. SENNA [Concomitant]
     Active Substance: SENNA LEAF\SENNOSIDES\SENNOSIDES A AND B
     Indication: CONSTIPATION
     Dosage: 24 MG, UNK
     Route: 048
     Dates: end: 20070525
  14. HIRNAMIN [Suspect]
     Active Substance: PHENOTHIAZINE
     Indication: PRODUCT USED FOR UNKNOWN INDICATION
     Dosage: 25 MG, QD
     Route: 048
     Dates: start: 20070404, end: 20070430
  15. PUZERANE [Concomitant]
     Dosage: 50 MG, BID
     Route: 048
     Dates: start: 20070316, end: 20070322
  16. TASMOLIN [Concomitant]
     Active Substance: BIPERIDEN
     Indication: PARKINSONISM
     Dosage: 1 MG, TID
     Route: 048
     Dates: start: 20070316, end: 20070322
  17. RISPERDAL [Suspect]
     Active Substance: RISPERIDONE
     Dosage: 3 MG, TID
     Route: 048
     Dates: start: 20070420, end: 20070424
  18. CHLORPROMAZINE HYDROCHLORIDE. [Concomitant]
     Active Substance: CHLORPROMAZINE HYDROCHLORIDE
     Indication: SCHIZOPHRENIA
     Dosage: 50 MG, QID
     Route: 048
     Dates: end: 20070405
  19. CHLORPROMAZINE HYDROCHLORIDE. [Concomitant]
     Active Substance: CHLORPROMAZINE HYDROCHLORIDE
     Dosage: 50 MG, QD
     Route: 048
     Dates: start: 20070413, end: 20070420
  20. HALOMIDOL [Concomitant]
     Indication: SCHIZOPHRENIA
     Dosage: 7.5 MG, QID
     Route: 048
     Dates: end: 20070315
  21. PUZERANE [Concomitant]
     Dosage: 50 MG, QD
     Route: 048
     Dates: start: 20070323, end: 20070329
  22. TASMOLIN [Concomitant]
     Active Substance: BIPERIDEN
     Dosage: 1 MG, BID
     Route: 048
     Dates: start: 20070323, end: 20070405
  23. RISPERIDONE. [Suspect]
     Active Substance: RISPERIDONE
     Indication: PRODUCT USED FOR UNKNOWN INDICATION
     Dosage: 6MG 13-APR TO 19-APR; 9MG 20APR-24APR
     Route: 048
     Dates: start: 20070404, end: 20070424
  24. CYSVON [Concomitant]
     Active Substance: NITRAZEPAM
     Indication: INSOMNIA
     Dosage: 15 MG, QD
     Route: 048
     Dates: end: 20070412
  25. DORAL [Concomitant]
     Active Substance: QUAZEPAM
     Dosage: 15 MG, QD
     Route: 048
     Dates: start: 20070509, end: 20070525
  26. NELBON [Concomitant]
     Active Substance: NITRAZEPAM
     Indication: INSOMNIA
     Dosage: 20 MG, QD
     Route: 048
     Dates: start: 20070413, end: 20070525

REACTIONS (4)
  - Anaemia [Not Recovered/Not Resolved]
  - Hepatic function abnormal [Fatal]
  - Prurigo [Recovered/Resolved with Sequelae]
  - Weight decreased [Not Recovered/Not Resolved]

NARRATIVE: CASE EVENT DATE: 20070323
